FAERS Safety Report 6132770-9 (Version None)
Quarter: 2009Q1

REPORT INFORMATION
  Report Type: 
  Country: None (occurrence: None)
  Receive Date: 20090326
  Receipt Date: 20090319
  Transmission Date: 20090719
  Serious: Yes (Life-Threatening, Congenital Anomaly, Other)
  Sender: FDA-Public Use
  Company Number: GB-TEVA-188700ISR

PATIENT
  Age: 3 Year
  Sex: Female

DRUGS (3)
  1. CARBAMAZEPINE [Suspect]
     Route: 064
  2. MIRTAZAPINE [Suspect]
     Route: 064
  3. OXAZEPAM [Suspect]
     Route: 064

REACTIONS (1)
  - MEDULLOBLASTOMA [None]
